FAERS Safety Report 5825758-6 (Version None)
Quarter: 2008Q3

REPORT INFORMATION
  Report Type: 
  Country: None (occurrence: None)
  Receive Date: 20080728
  Receipt Date: 20080728
  Transmission Date: 20090109
  Serious: Yes (Other)
  Sender: FDA-Public Use
  Company Number: None

PATIENT
  Sex: Female
  Weight: 80.7403 kg

DRUGS (3)
  1. BONIVA [Suspect]
     Indication: MENOPAUSAL SYMPTOMS
     Dosage: BONIVA 3MG INITIAL DOSE IV BOLUS
     Route: 040
     Dates: start: 20080724, end: 20080724
  2. BONIVA [Suspect]
     Indication: OSTEOPENIA
     Dosage: BONIVA 3MG INITIAL DOSE IV BOLUS
     Route: 040
     Dates: start: 20080724, end: 20080724
  3. VENOFER [Concomitant]

REACTIONS (13)
  - ARTHRALGIA [None]
  - CEREBROVASCULAR ACCIDENT [None]
  - CHILLS [None]
  - DRUG EFFECT DECREASED [None]
  - FEELING ABNORMAL [None]
  - GAIT DISTURBANCE [None]
  - JOINT STIFFNESS [None]
  - MUSCLE SPASMS [None]
  - MUSCULOSKELETAL STIFFNESS [None]
  - MYALGIA [None]
  - OROPHARYNGEAL PAIN [None]
  - PAIN [None]
  - PYREXIA [None]
